FAERS Safety Report 8608024-5 (Version None)
Quarter: 2012Q3

REPORT INFORMATION
  Report Type: 
  Country: None (occurrence: None)
  Receive Date: 20120807
  Receipt Date: 20120723
  Transmission Date: 20120928
  Serious: Yes (Hospitalization, Other)
  Sender: FDA-Public Use
  Company Number: ES-1193500

PATIENT
  Age: 1 Month
  Sex: Male
  Weight: 1.4 kg

DRUGS (2)
  1. MYDRIACYL [Suspect]
     Indication: FUNDOSCOPY
     Dosage: (1 GTT TOTAL OPHTHALMIC)
     Route: 047
     Dates: start: 20120717, end: 20120717
  2. COLIRCUSI FENILEFRINA 10 % OPHTHALMIC SOLUTION (FENILEFRINA) [Suspect]
     Indication: FUNDOSCOPY
     Dosage: (1 GTT TOTAL OPHTHALMIC)
     Route: 047
     Dates: start: 20120717, end: 20120717

REACTIONS (2)
  - CONVULSION NEONATAL [None]
  - CLONIC CONVULSION [None]
